FAERS Safety Report 11899713 (Version 1)
Quarter: 2016Q1

REPORT INFORMATION
  Report Type: Spontaneous
  Country: US (occurrence: US)
  Receive Date: 20160108
  Receipt Date: 20160108
  Transmission Date: 20160526
  Serious: No
  Sender: FDA-Public Use
  Company Number: US-TARO-2015TAR00810

PATIENT
  Age: 73 Year
  Sex: Female
  Weight: 90.7 kg

DRUGS (3)
  1. DESOXIMETASONE CREAM USP 0.05% [Suspect]
     Active Substance: DESOXIMETASONE
     Indication: DERMATITIS
     Dosage: A LIGHT COATING, 3X/DAY
     Route: 061
     Dates: start: 20150624, end: 20150706
  2. UNSPECIFIED ^CHOLESTEROL^ PILLS [Concomitant]
  3. UNSPECIFIED ^PRESSURE^ PILLS [Concomitant]

REACTIONS (1)
  - Drug ineffective [Not Recovered/Not Resolved]

NARRATIVE: CASE EVENT DATE: 20150624
